FAERS Safety Report 6761500-2 (Version None)
Quarter: 2010Q2

REPORT INFORMATION
  Report Type: 
  Country: None (occurrence: None)
  Receive Date: 20100607
  Receipt Date: 20100524
  Transmission Date: 20101027
  Serious: Yes (Death)
  Sender: FDA-Public Use
  Company Number: DKLU1062452

PATIENT
  Age: 17 Year
  Sex: Female

DRUGS (6)
  1. SABRIL [Suspect]
     Indication: EPILEPSY
     Dosage: 500 MG, MILLIGRAM(S), 1IN 1 D, G-TUBE
     Dates: start: 20100404, end: 20100416
  2. DILANTIN [Concomitant]
  3. TOPAMAX [Concomitant]
  4. KEPPRA [Concomitant]
  5. VIMPAT [Concomitant]
  6. TRANXENE [Concomitant]

REACTIONS (1)
  - DEATH [None]
